FAERS Safety Report 24965193 (Version 1)
Quarter: 2025Q1

REPORT INFORMATION
  Report Type: Spontaneous
  Country: US (occurrence: None)
  Receive Date: 20250212
  Receipt Date: 20250212
  Transmission Date: 20250409
  Serious: No
  Sender: FDA-CTU
  Company Number: None

PATIENT
  Age: 36 Year
  Sex: Female
  Weight: 87.75 kg

DRUGS (11)
  1. ENBREL [Suspect]
     Active Substance: ETANERCEPT
     Indication: Psoriatic arthropathy
     Dosage: OTHER QUANTITY : 1 INJECTION(S);?FREQUENCY : WEEKLY;?
     Route: 058
     Dates: start: 20250105, end: 20250202
  2. ENBREL [Suspect]
     Active Substance: ETANERCEPT
     Indication: Psoriasis
  3. BUPROPION [Concomitant]
     Active Substance: BUPROPION
  4. DESVENLAFAXINE [Concomitant]
     Active Substance: DESVENLAFAXINE
  5. FOLIC ACID [Concomitant]
     Active Substance: FOLIC ACID
  6. ANNOVERA [Concomitant]
     Active Substance: ETHINYL ESTRADIOL\SEGESTERONE ACETATE
  7. RIZATRIPTAN [Concomitant]
     Active Substance: RIZATRIPTAN
  8. selenium sulfide shampoo [Concomitant]
  9. CLOBETASOL PROPIONATE [Concomitant]
     Active Substance: CLOBETASOL PROPIONATE
  10. IBUPROFEN [Concomitant]
     Active Substance: IBUPROFEN
  11. NAPROXEN [Concomitant]
     Active Substance: NAPROXEN

REACTIONS (5)
  - Nasopharyngitis [None]
  - Influenza [None]
  - Headache [None]
  - Fatigue [None]
  - Oropharyngeal pain [None]

NARRATIVE: CASE EVENT DATE: 20250201
